FAERS Safety Report 9358980 (Version 2)
Quarter: 2013Q3

REPORT INFORMATION
  Report Type: Spontaneous
  Country: IT (occurrence: IT)
  Receive Date: 20130617
  Receipt Date: 20130722
  Transmission Date: 20140515
  Serious: Yes (Life-Threatening)
  Sender: FDA-Public Use
  Company Number: FK201301968

PATIENT
  Age: 38 Year
  Sex: Female

DRUGS (4)
  1. PROPOFOL [Suspect]
     Indication: GENERAL ANAESTHESIA
     Route: 042
     Dates: start: 20130523, end: 20130523
  2. FENTANEST [Suspect]
     Indication: GENERAL ANAESTHESIA
     Route: 042
     Dates: start: 20130523, end: 20130523
  3. CISATRACURIUM [Suspect]
     Indication: GENERAL ANAESTHESIA
     Route: 042
     Dates: start: 20130523, end: 20130523
  4. RYTMONORM (PROPAFENONE)(PROPAFENONE) [Concomitant]

REACTIONS (2)
  - Anaphylactic reaction [None]
  - Hypotension [None]
